FAERS Safety Report 5508785-8 (Version None)
Quarter: 2007Q4

REPORT INFORMATION
  Report Type: 
  Country: None (occurrence: None)
  Receive Date: 20071107
  Receipt Date: 20071030
  Transmission Date: 20080405
  Serious: Yes (Hospitalization)
  Sender: FDA-Public Use
  Company Number: B0493775A

PATIENT
  Age: 57 Year
  Sex: Female

DRUGS (6)
  1. ZELITREX [Suspect]
  2. CELLCEPT [Suspect]
     Route: 048
     Dates: end: 20070328
  3. INEXIUM [Suspect]
     Route: 048
     Dates: end: 20070328
  4. BACTRIM [Concomitant]
     Route: 048
     Dates: end: 20070328
  5. PROGRAF [Concomitant]
     Route: 048
  6. CORTANCYL [Concomitant]
     Route: 048

REACTIONS (5)
  - ALANINE AMINOTRANSFERASE INCREASED [None]
  - ASPARTATE AMINOTRANSFERASE INCREASED [None]
  - HEPATOCELLULAR DAMAGE [None]
  - LEUKOPENIA [None]
  - NEUTROPENIA [None]
